FAERS Safety Report 5663056-4 (Version None)
Quarter: 2008Q1

REPORT INFORMATION
  Report Type: 
  Country: None (occurrence: None)
  Receive Date: 20080313
  Receipt Date: 20080311
  Transmission Date: 20080703
  Serious: Yes (Life-Threatening, Hospitalization, Other)
  Sender: FDA-Public Use
  Company Number: US-JNJFOC-20071201206

PATIENT
  Sex: Female
  Weight: 81.65 kg

DRUGS (9)
  1. SPORANOX [Suspect]
     Indication: ONYCHOMYCOSIS
     Route: 048
  2. COZAAR [Concomitant]
     Indication: HYPERTENSION
     Route: 048
  3. HTCZ [Concomitant]
     Indication: HYPERTENSION
     Route: 048
  4. EFFEXOR [Concomitant]
     Indication: ANXIETY
     Route: 048
  5. NORTRIPTYLINE HCL [Concomitant]
     Indication: ANXIETY
     Route: 065
  6. XANAX [Concomitant]
     Route: 065
  7. XANAX [Concomitant]
     Indication: ANXIETY
     Route: 065
  8. PRILOSEC [Concomitant]
     Indication: GASTROOESOPHAGEAL REFLUX DISEASE
     Route: 065
  9. RESTORIL [Concomitant]
     Indication: INSOMNIA
     Route: 065

REACTIONS (15)
  - ABDOMINAL WALL ABSCESS [None]
  - ABSCESS LIMB [None]
  - ANDROGENETIC ALOPECIA [None]
  - EYELID PTOSIS [None]
  - HYPOTENSION [None]
  - INCISION SITE ABSCESS [None]
  - LIVER FUNCTION TEST ABNORMAL [None]
  - LOSS OF CONSCIOUSNESS [None]
  - NAIL DISORDER [None]
  - PARANOIA [None]
  - SCAB [None]
  - SEPTIC SHOCK [None]
  - STEVENS-JOHNSON SYNDROME [None]
  - THERMAL BURN [None]
  - WEIGHT DECREASED [None]
